FAERS Safety Report 10474813 (Version 1)
Quarter: 2014Q3

REPORT INFORMATION
  Report Type: Spontaneous
  Country: US (occurrence: US)
  Receive Date: 20140925
  Receipt Date: 20140925
  Transmission Date: 20150326
  Serious: No
  Sender: FDA-Public Use
  Company Number: US-AMGEN INC.-USASP2014072467

PATIENT
  Age: 47 Year
  Sex: Female

DRUGS (1)
  1. ENBREL [Suspect]
     Active Substance: ETANERCEPT
     Indication: RHEUMATOID ARTHRITIS
     Dosage: 50 MG, QWK
     Route: 065
     Dates: start: 20140828

REACTIONS (9)
  - Feeling abnormal [Not Recovered/Not Resolved]
  - Influenza like illness [Unknown]
  - Diarrhoea [Recovered/Resolved]
  - Injection site pruritus [Unknown]
  - Vomiting [Recovered/Resolved]
  - Pyrexia [Not Recovered/Not Resolved]
  - Injection site erythema [Unknown]
  - Headache [Recovered/Resolved]
  - Muscular weakness [Not Recovered/Not Resolved]

NARRATIVE: CASE EVENT DATE: 20140828
